FAERS Safety Report 5080139-0 (Version None)
Quarter: 2006Q3

REPORT INFORMATION
  Report Type: 
  Country: None (occurrence: None)
  Receive Date: 20060810
  Receipt Date: 20060802
  Transmission Date: 20061208
  Serious: Yes (Hospitalization)
  Sender: FDA-Public Use
  Company Number: S06-USA-03020-01

PATIENT
  Age: 86 Year
  Sex: Female

DRUGS (6)
  1. NAMENDA [Suspect]
     Indication: DEMENTIA ALZHEIMER'S TYPE
     Dates: start: 20060601, end: 20060701
  2. LEXAPRO [Suspect]
     Dosage: 10 MG QD PO
     Route: 048
  3. NORVASC [Concomitant]
  4. METOPROLOL [Concomitant]
  5. ACETAMINOPHEN [Concomitant]
  6. EXELON [Concomitant]

REACTIONS (1)
  - URINARY RETENTION [None]
